FAERS Safety Report 8956960 (Version 4)
Quarter: 2013Q1

REPORT INFORMATION
  Report Type: Report from Study
  Country: US (occurrence: US)
  Receive Date: 20121210
  Receipt Date: 20130220
  Transmission Date: 20140127
  Serious: Yes (Death, Hospitalization, Other)
  Sender: FDA-Public Use
  Company Number: US-009507513-1212USA001413

PATIENT
  Age: 64 Year
  Sex: Male
  Weight: 66.7 kg

DRUGS (7)
  1. SIMVASTATIN [Suspect]
     Indication: ACUTE CORONARY SYNDROME
     Dosage: 40 MG, QD
     Route: 048
     Dates: start: 20060928
  2. LISINOPRIL [Concomitant]
     Dosage: 40 MG DAILY DOSE
     Route: 048
     Dates: start: 20061011
  3. HYTRIN [Concomitant]
     Dosage: 2 MG DAILY DOSE
     Route: 048
     Dates: start: 20121024
  4. PLAVIX [Concomitant]
     Dosage: 75 MG DAILY
     Route: 048
     Dates: start: 20061011
  5. NITROGLYCERIN [Concomitant]
     Dosage: 0.4 MG, PRN
     Route: 060
     Dates: start: 20091113
  6. METOPROLOL [Concomitant]
     Dosage: 50 MG DAILY DOSE
     Route: 048
     Dates: start: 20061011
  7. ASPIRIN [Concomitant]
     Dosage: 325 MG DAILY DOSE
     Route: 048
     Dates: start: 20060927

REACTIONS (3)
  - Transitional cell carcinoma [Fatal]
  - Hydronephrosis [Unknown]
  - Pulmonary mass [Fatal]
